FAERS Safety Report 14598805 (Version 1)
Quarter: 2018Q1

REPORT INFORMATION
  Report Type: Spontaneous
  Country: SE (occurrence: SE)
  Receive Date: 20180305
  Receipt Date: 20180305
  Transmission Date: 20180509
  Serious: Yes (Other)
  Sender: FDA-Public Use
  Company Number: SE-PFIZER INC-2018090480

PATIENT
  Age: 13 Year
  Sex: Female

DRUGS (1)
  1. SERTRALINE HCL [Suspect]
     Active Substance: SERTRALINE HYDROCHLORIDE
     Indication: DEPRESSION
     Dosage: 75 MG, DAILY
     Route: 048
     Dates: start: 20170913

REACTIONS (3)
  - Disease recurrence [Unknown]
  - Hypomania [Unknown]
  - Suicide attempt [Unknown]

NARRATIVE: CASE EVENT DATE: 20171016
